FAERS Safety Report 11023271 (Version 2)
Quarter: 2015Q2

REPORT INFORMATION
  Report Type: Spontaneous
  Country: RU (occurrence: RU)
  Receive Date: 20150413
  Receipt Date: 20150423
  Transmission Date: 20150821
  Serious: Yes (Life-Threatening, Other)
  Sender: FDA-Public Use
  Company Number: RU-ELI_LILLY_AND_COMPANY-RU201504002075

PATIENT
  Sex: Female

DRUGS (3)
  1. CAPOTEN [Concomitant]
     Active Substance: CAPTOPRIL
     Indication: HYPERTENSION
  2. CAPOTEN [Concomitant]
     Active Substance: CAPTOPRIL
     Indication: BLOOD PRESSURE INCREASED
     Dosage: UNK, UNKNOWN
     Route: 065
  3. FORSTEO [Suspect]
     Active Substance: TERIPARATIDE
     Indication: OSTEOPOROSIS POSTMENOPAUSAL
     Dosage: 20 UG, UNKNOWN
     Route: 065
     Dates: start: 20150225, end: 20150406

REACTIONS (4)
  - Oropharyngeal swelling [Recovering/Resolving]
  - Face oedema [Recovering/Resolving]
  - Discomfort [Recovering/Resolving]
  - Blood pressure increased [Recovering/Resolving]

NARRATIVE: CASE EVENT DATE: 20150406
